FAERS Safety Report 20020875 (Version 1)
Quarter: 2021Q4

REPORT INFORMATION
  Report Type: Spontaneous
  Country: FR (occurrence: FR)
  Receive Date: 20211101
  Receipt Date: 20211101
  Transmission Date: 20220303
  Serious: Yes (Death)
  Sender: FDA-Public Use
  Company Number: None

PATIENT
  Age: 20 Year
  Sex: Male

DRUGS (2)
  1. TRAMADOL [Suspect]
     Active Substance: TRAMADOL
     Indication: Product used for unknown indication
     Dosage: ICONNUE
     Route: 065
     Dates: end: 202010
  2. LOXAPINE [Suspect]
     Active Substance: LOXAPINE
     Indication: Product used for unknown indication
     Dosage: ICONNUE
     Route: 065
     Dates: end: 202010

REACTIONS (3)
  - Poisoning deliberate [Fatal]
  - Respiratory depression [Fatal]
  - Asphyxia [Fatal]
